FAERS Safety Report 21278999 (Version 1)
Quarter: 2022Q3

REPORT INFORMATION
  Report Type: Report from Study
  Country: BR (occurrence: BR)
  Receive Date: 20220901
  Receipt Date: 20220901
  Transmission Date: 20221027
  Serious: Yes (Life-Threatening, Hospitalization, Other)
  Sender: FDA-Public Use
  Company Number: BR-BRISTOL-MYERS SQUIBB COMPANY-BMS-2021-005712

PATIENT
  Age: 56 Year
  Sex: Female
  Weight: 66 kg

DRUGS (13)
  1. NIVOLUMAB [Suspect]
     Active Substance: NIVOLUMAB
     Indication: Hepatocellular carcinoma
     Dosage: MG
     Route: 065
     Dates: start: 20201217, end: 20201217
  2. NIVOLUMAB [Suspect]
     Active Substance: NIVOLUMAB
     Dosage: MG
     Route: 065
     Dates: start: 20210115, end: 20210115
  3. IPILIMUMAB [Suspect]
     Active Substance: IPILIMUMAB
     Indication: Hepatocellular carcinoma
     Dosage: 201.6 MILLIGRAM
     Route: 065
     Dates: start: 20201217, end: 20201217
  4. IPILIMUMAB [Suspect]
     Active Substance: IPILIMUMAB
     Dosage: 173.25 MILLIGRAM
     Route: 065
     Dates: start: 20210115, end: 20210115
  5. FENTANYL [Concomitant]
     Active Substance: FENTANYL
     Indication: Product used for unknown indication
     Dosage: 75 MILLIGRAM
     Route: 062
     Dates: start: 201707
  6. AMITRIPTYLINE [Concomitant]
     Active Substance: AMITRIPTYLINE
     Indication: Product used for unknown indication
     Dosage: 1 ABSENT 1 ABSENT
     Route: 048
     Dates: start: 201707
  7. GABAPENTIN [Concomitant]
     Active Substance: GABAPENTIN
     Indication: Product used for unknown indication
     Dosage: 1 ABSENT 1 ABSENT
     Route: 048
     Dates: start: 201707
  8. BETAMETHASONE [Concomitant]
     Active Substance: BETAMETHASONE
     Indication: Product used for unknown indication
     Dosage: 1 ABSENT 1 ABSENT
     Route: 061
     Dates: start: 201707
  9. BETAMETHASONE [Concomitant]
     Active Substance: BETAMETHASONE
     Dosage: 3 ABSENT 3 ABSENT
     Route: 061
     Dates: start: 202003
  10. CYCLOBENZAPRINE [Concomitant]
     Active Substance: CYCLOBENZAPRINE
     Indication: Product used for unknown indication
     Dosage: 1 ABSENT 1 ABSENT
     Route: 048
     Dates: start: 201707
  11. DIPYRONE [Concomitant]
     Active Substance: DIPYRONE
     Indication: Product used for unknown indication
     Dosage: 40 ABSENT 40 ABSENT
     Route: 048
     Dates: start: 201707
  12. LIDOCAINE [Concomitant]
     Active Substance: LIDOCAINE
     Indication: Product used for unknown indication
     Dosage: 1 ABSENT 1 ABSENT
     Route: 061
     Dates: start: 201707
  13. SODIUM CHLORIDE [Concomitant]
     Active Substance: SODIUM CHLORIDE
     Indication: Product used for unknown indication
     Dosage: 500 ABSENT 500 ABSENT
     Route: 042
     Dates: start: 20210107, end: 20210107

REACTIONS (2)
  - Colitis [Recovered/Resolved]
  - Acute kidney injury [Recovered/Resolved]

NARRATIVE: CASE EVENT DATE: 20210118
